FAERS Safety Report 22274656 (Version 1)
Quarter: 2023Q2

REPORT INFORMATION
  Report Type: Report from Study
  Country: KR (occurrence: None)
  Receive Date: 20230502
  Receipt Date: 20230502
  Transmission Date: 20230722
  Serious: Yes (Death)
  Sender: FDA-Public Use
  Company Number: KR-ROCHE-3341898

PATIENT
  Age: 70 Year
  Sex: Male
  Weight: 75.8 kg

DRUGS (15)
  1. ATEZOLIZUMAB [Suspect]
     Active Substance: ATEZOLIZUMAB
     Indication: Non-small cell lung cancer metastatic
     Dosage: ON 20/APR/2023, RECEIVED LAST DOSE OF ATEZOLIZUMAB BEFORE EVENT ONSET.
     Route: 041
     Dates: start: 20230308, end: 20230420
  2. TIRAGOLUMAB [Suspect]
     Active Substance: TIRAGOLUMAB
     Indication: Non-small cell lung cancer metastatic
     Dosage: ON 20/APR/2023, RECEIVED LAST DOSE OF TIRAGOLUMAB BEFORE EVENT ONSET.
     Route: 042
     Dates: start: 20230308, end: 20230420
  3. SYNTHROID [Concomitant]
     Active Substance: LEVOTHYROXINE SODIUM
     Dates: start: 1993
  4. SYMBICORT [Concomitant]
     Active Substance: BUDESONIDE\FORMOTEROL FUMARATE DIHYDRATE
     Dosage: 2 PUFF
     Dates: start: 2013
  5. MAGMIL S [Concomitant]
     Dates: start: 20230216
  6. LYRICA [Concomitant]
     Active Substance: PREGABALIN
     Dates: start: 20230228
  7. NALOXONE HYDROCHLORIDE\OXYCODONE HYDROCHLORIDE [Concomitant]
     Active Substance: NALOXONE HYDROCHLORIDE\OXYCODONE HYDROCHLORIDE
     Dosage: 2T
     Dates: start: 20230228
  8. ACECLOFENAC [Concomitant]
     Active Substance: ACECLOFENAC
     Dates: start: 20230228
  9. LANSOPRAZOLE [Concomitant]
     Active Substance: LANSOPRAZOLE
     Dates: start: 20230228
  10. MEGACE F [Concomitant]
     Dates: start: 20230228
  11. DULCOLAX-S [Concomitant]
     Dosage: 2T
     Dates: start: 20230308
  12. DULACKHAN EASY [Concomitant]
     Dates: start: 20230308
  13. BROMHEXINE HYDROCHLORIDE [Concomitant]
     Active Substance: BROMHEXINE HYDROCHLORIDE
     Dates: start: 20230329
  14. XARELTO [Concomitant]
     Active Substance: RIVAROXABAN
     Dates: start: 20230420
  15. URSODIOL [Concomitant]
     Active Substance: URSODIOL
     Dates: start: 20230420

REACTIONS (1)
  - Cardiac arrest [Fatal]

NARRATIVE: CASE EVENT DATE: 20230420
